FAERS Safety Report 7139451-3 (Version None)
Quarter: 2010Q4

REPORT INFORMATION
  Report Type: 
  Country: None (occurrence: None)
  Receive Date: 20101206
  Receipt Date: 20101130
  Transmission Date: 20110411
  Serious: Yes (Other)
  Sender: FDA-Public Use
  Company Number: US-PFIZER INC-2010160841

PATIENT
  Sex: Female

DRUGS (10)
  1. RELISTOR [Suspect]
     Indication: CONSTIPATION
     Dosage: 8 MG, ALTERNATE DAY
     Route: 058
     Dates: start: 20101101
  2. DILAUDID [Concomitant]
     Indication: PAIN
     Dosage: 8 MG, UNK
  3. CAFFEINE [Concomitant]
     Indication: PAIN
     Dosage: UNK
  4. MORPHINE [Concomitant]
     Indication: PAIN
     Dosage: UNK
  5. AMITRIPTYLINE [Concomitant]
     Dosage: UNK
  6. LEVAQUIN [Concomitant]
     Dosage: 750 MG, UNK
  7. METRONIDAZOLE [Concomitant]
     Dosage: 500 MG, UNK
  8. CARAFATE [Concomitant]
     Dosage: 1 MG, UNK
  9. PROTONIX [Concomitant]
     Dosage: UNK
  10. DIAZEPAM [Concomitant]
     Dosage: UNK

REACTIONS (2)
  - MOVEMENT DISORDER [None]
  - PAIN IN EXTREMITY [None]
